FAERS Safety Report 9337087 (Version 1)
Quarter: 2013Q2

REPORT INFORMATION
  Report Type: Spontaneous
  Country: US (occurrence: US)
  Receive Date: 20130607
  Receipt Date: 20130607
  Transmission Date: 20140414
  Serious: No
  Sender: FDA-Public Use
  Company Number: US-009507513-1306USA001382

PATIENT
  Age: 69 Year
  Sex: Female
  Weight: 54.42 kg

DRUGS (1)
  1. MIRALAX [Suspect]
     Indication: CONSTIPATION
     Dosage: UNK, TIW
     Route: 048
     Dates: start: 20130220

REACTIONS (2)
  - Fluid retention [Not Recovered/Not Resolved]
  - Inappropriate schedule of drug administration [Unknown]
